FAERS Safety Report 15628850 (Version 8)
Quarter: 2019Q1

REPORT INFORMATION
  Report Type: Report from Study
  Country: JP (occurrence: JP)
  Receive Date: 20181116
  Receipt Date: 20190221
  Transmission Date: 20190417
  Serious: Yes (Hospitalization)
  Sender: FDA-Public Use
  Company Number: JP-PFIZER INC-2018473185

PATIENT
  Age: 15 Year
  Sex: Male
  Weight: 44 kg

DRUGS (13)
  1. DRUG, UNSPECIFIED [Suspect]
     Active Substance: UNSPECIFIED INGREDIENT
     Indication: FIBRODYSPLASIA OSSIFICANS PROGRESSIVA
     Dosage: 1 TAB/DAY
     Route: 048
     Dates: start: 20180817
  2. TSUMURA YOKUKANSAN EXTRACT GRANULES FOR ETHICAL USE [Concomitant]
     Active Substance: HERBALS
     Indication: GASTRITIS
     Dosage: 2.5 G, 1X/DAY
     Route: 048
  3. OLOPATADINE HYDROCHLORIDE OD [Concomitant]
     Indication: RHINITIS ALLERGIC
     Dosage: UNK
  4. GASCON [Concomitant]
     Active Substance: DIMETHICONE
     Indication: GASTRITIS PROPHYLAXIS
     Dosage: 40 MG, 3X/DAY
     Route: 048
  5. DRUG, UNSPECIFIED [Suspect]
     Active Substance: UNSPECIFIED INGREDIENT
     Dosage: 2 TAB/ DAY
     Route: 048
     Dates: start: 20180913, end: 20181107
  6. DALACIN T [Concomitant]
     Active Substance: CLINDAMYCIN PHOSPHATE
     Indication: ACNE
     Dosage: UNK
     Route: 062
     Dates: start: 20180912
  7. AZUNOL GARGLE LIQUID [Concomitant]
     Indication: STOMATITIS
     Dosage: UNK
     Route: 049
     Dates: start: 20181017
  8. TSUMURA EPPIKAJUTSUTO EXTRACT GRANULES FOR ETHICAL USE [Concomitant]
     Indication: ECZEMA
     Dosage: 2.5 G, 1X/DAY
     Route: 048
  9. LOXOPROFEN SODIUM HYDRATE [Concomitant]
     Active Substance: LOXOPROFEN SODIUM DIHYDRATE
     Indication: ANALGESIC THERAPY
     Dosage: UNK
     Route: 048
  10. LYRICA [Concomitant]
     Active Substance: PREGABALIN
     Indication: ANALGESIC THERAPY
     Dosage: 75 MG, 2X/DAY
     Route: 048
  11. DEXALTIN [Concomitant]
     Active Substance: DEXAMETHASONE
     Indication: STOMATITIS
     Dosage: UNK
     Route: 062
     Dates: start: 20180912
  12. DRUG, UNSPECIFIED [Suspect]
     Active Substance: UNSPECIFIED INGREDIENT
     Dosage: 1 TAB/DAY
     Route: 048
     Dates: start: 20181123
  13. LAMISIL [Concomitant]
     Active Substance: TERBINAFINE HYDROCHLORIDE
     Indication: ACNE
     Dosage: UNK
     Route: 062
     Dates: start: 20181102

REACTIONS (2)
  - Superior mesenteric artery syndrome [Recovering/Resolving]
  - Ileus [Recovered/Resolved]

NARRATIVE: CASE EVENT DATE: 20181107
